FAERS Safety Report 13062720 (Version 2)
Quarter: 2017Q1

REPORT INFORMATION
  Report Type: Report from Study
  Country: MX (occurrence: MX)
  Receive Date: 20161226
  Receipt Date: 20170123
  Transmission Date: 20170428
  Serious: Yes (Other)
  Sender: FDA-Public Use
  Company Number: PHHY2016MX176969

PATIENT
  Sex: Female
  Weight: 72 kg

DRUGS (4)
  1. EXELON PATCH [Suspect]
     Active Substance: RIVASTIGMINE
     Indication: SENILE DEMENTIA
     Dosage: 4.6 MG, QD  PATCH 5 (CM 2)
     Route: 062
  2. ATORVASTATIN [Concomitant]
     Active Substance: ATORVASTATIN
     Indication: THYROID DISORDER
     Dosage: 1 DF, QD (SINCE 3 MONTHS)
     Route: 048
  3. ASPIRIN PROTECT [Concomitant]
     Active Substance: ASPIRIN
     Indication: DEMENTIA
     Dosage: 1 DF, QD (SINCE 3 MONTHS)
     Route: 048
  4. LEVOTHYROXINE. [Concomitant]
     Active Substance: LEVOTHYROXINE
     Indication: THYROID DISORDER
     Dosage: 0.25 DF, QD (SINCE 3 MONTHS)
     Route: 048

REACTIONS (5)
  - Senile dementia [Recovering/Resolving]
  - Condition aggravated [Recovering/Resolving]
  - Amnesia [Recovering/Resolving]
  - Personality disorder of childhood [Recovering/Resolving]
  - Product use issue [Not Recovered/Not Resolved]
